FAERS Safety Report 20824600 (Version 1)
Quarter: 2022Q2

REPORT INFORMATION
  Report Type: Spontaneous
  Country: US (occurrence: US)
  Receive Date: 20220513
  Receipt Date: 20220513
  Transmission Date: 20220721
  Serious: No
  Sender: FDA-Public Use
  Company Number: US-SUN PHARMACEUTICAL INDUSTRIES LTD-2022R1-329604

PATIENT
  Sex: Male

DRUGS (1)
  1. ILUMYA [Suspect]
     Active Substance: TILDRAKIZUMAB-ASMN
     Indication: Skin disorder
     Dosage: 100 MILLIGRAM, ON DAY 0, THEN ON WEEK 4 AND EVERY 12 WEEKS THEREAFTER
     Route: 058

REACTIONS (1)
  - Drug ineffective [Unknown]
